FAERS Safety Report 9452329 (Version 1)
Quarter: 2013Q3

REPORT INFORMATION
  Report Type: Spontaneous
  Country: US (occurrence: None)
  Receive Date: 20130808
  Receipt Date: 20130808
  Transmission Date: 20140515
  Serious: No
  Sender: FDA-Public Use
  Company Number: None

PATIENT
  Sex: 0

DRUGS (1)
  1. ALFUZOSIN [Suspect]

REACTIONS (6)
  - Urine output decreased [None]
  - Dysuria [None]
  - Dysuria [None]
  - Discomfort [None]
  - Product quality issue [None]
  - Product substitution issue [None]
